FAERS Safety Report 4713513-X (Version None)
Quarter: 2005Q3

REPORT INFORMATION
  Report Type: 
  Country: None (occurrence: None)
  Receive Date: 20050711
  Receipt Date: 20050628
  Transmission Date: 20060218
  Serious: Yes (Life-Threatening, Hospitalization, Other)
  Sender: FDA-Public Use
  Company Number: 2005081999

PATIENT
  Age: 69 Year
  Sex: Female
  Weight: 40 kg

DRUGS (1)
  1. SULPERAZONE (SULBACTAM, CEFOPERAZONE) [Suspect]
     Indication: ANTIBIOTIC PROPHYLAXIS
     Dosage: 2 GRAM (1 GRAM,1 IN 2 D),INTRAVENOUS
     Route: 042
     Dates: start: 20050520, end: 20050520

REACTIONS (3)
  - CARDIO-RESPIRATORY ARREST [None]
  - LOSS OF CONSCIOUSNESS [None]
  - URTICARIA [None]
